FAERS Safety Report 8553921 (Version 9)
Quarter: 2019Q2

REPORT INFORMATION
  Report Type: Report from Study
  Country: US (occurrence: US)
  Receive Date: 20120509
  Receipt Date: 20190619
  Transmission Date: 20190711
  Serious: Yes (Other)
  Sender: FDA-Public Use
  Company Number: US-ROCHE-712790

PATIENT

DRUGS (10)
  1. BEVACIZUMAB. [Suspect]
     Active Substance: BEVACIZUMAB
     Indication: BRAIN STEM GLIOMA
  2. IRINOTECAN [Suspect]
     Active Substance: IRINOTECAN
     Indication: EPENDYMOMA
  3. IRINOTECAN [Suspect]
     Active Substance: IRINOTECAN
     Indication: GLIOMA
  4. IRINOTECAN [Suspect]
     Active Substance: IRINOTECAN
     Indication: MALIGNANT GLIOMA
     Route: 042
  5. IRINOTECAN [Suspect]
     Active Substance: IRINOTECAN
     Indication: BRAIN STEM GLIOMA
  6. BEVACIZUMAB. [Suspect]
     Active Substance: BEVACIZUMAB
     Indication: EPENDYMOMA
  7. IRINOTECAN [Suspect]
     Active Substance: IRINOTECAN
     Indication: MEDULLOBLASTOMA
  8. BEVACIZUMAB. [Suspect]
     Active Substance: BEVACIZUMAB
     Indication: MALIGNANT GLIOMA
     Route: 042
  9. BEVACIZUMAB. [Suspect]
     Active Substance: BEVACIZUMAB
     Indication: MEDULLOBLASTOMA
  10. BEVACIZUMAB. [Suspect]
     Active Substance: BEVACIZUMAB
     Indication: GLIOMA

REACTIONS (19)
  - Alanine aminotransferase increased [Unknown]
  - Rectal haemorrhage [Unknown]
  - Fatigue [Unknown]
  - Subdural haematoma [Unknown]
  - Pulmonary haemorrhage [Unknown]
  - Cerebral ischaemia [Unknown]
  - Nausea [Unknown]
  - Headache [Unknown]
  - Epistaxis [Recovered/Resolved]
  - Drug ineffective [Unknown]
  - Embolism [Unknown]
  - Central nervous system haemorrhage [Unknown]
  - Pancreatitis [Unknown]
  - Proteinuria [Recovered/Resolved]
  - Anaemia [Unknown]
  - Hypocalcaemia [Unknown]
  - Hypertension [Unknown]
  - Neutropenia [Unknown]
  - Aspartate aminotransferase increased [Unknown]
